FAERS Safety Report 8179844-9 (Version None)
Quarter: 2012Q1

REPORT INFORMATION
  Report Type: 
  Country: None (occurrence: None)
  Receive Date: 20120229
  Receipt Date: 20120216
  Transmission Date: 20120608
  Serious: Yes (Other)
  Sender: FDA-Public Use
  Company Number: TPA2012A00875

PATIENT
  Age: 53 Year
  Sex: Female
  Weight: 107.9561 kg

DRUGS (9)
  1. SINGULAIR [Concomitant]
  2. UNSPECIFIED ALLERGY SHOT (ALL OTHER THERAPEUTIC PRODUCTS) [Concomitant]
  3. CLARITIN-D (PSEUDOEPHEDRINE, LORATADINE) [Concomitant]
  4. ACTOS [Suspect]
     Indication: DIABETES MELLITUS
     Dosage: 45 MG
     Dates: end: 20111201
  5. METFORMIN HCL [Suspect]
     Indication: DIABETES MELLITUS
     Dosage: 1000 MG AM + 1500 MG PM
     Dates: end: 20111201
  6. QUINAPRIL (HYDROCHLOROTHIAZIDE, QUINAPRIL HYDROCHLORIDE) [Concomitant]
  7. ANTI-GLOBULIN (ALL OTHER THERAPEUTIC PRODUCTS) [Concomitant]
  8. TYLENOL-CODEINE (CODEINE, PARACETAMOL) [Concomitant]
  9. TYLENOL (CODEINE PHOSPHATE, PARACETAMOL) [Concomitant]

REACTIONS (3)
  - BLOOD GLUCOSE INCREASED [None]
  - CYSTITIS [None]
  - EYE DISORDER [None]
